FAERS Safety Report 6215441-X (Version None)
Quarter: 2009Q2

REPORT INFORMATION
  Report Type: 
  Country: None (occurrence: None)
  Receive Date: 20090603
  Receipt Date: 20090521
  Transmission Date: 20091009
  Serious: Yes (Life-Threatening)
  Sender: FDA-Public Use
  Company Number: 2009AL000155 (1)

PATIENT
  Age: 73 Year
  Sex: Male

DRUGS (1)
  1. DIGOXIN [Suspect]
     Dosage: 0.25 MG, DAILY, PO
     Route: 048

REACTIONS (14)
  - ATRIAL FIBRILLATION [None]
  - BACK PAIN [None]
  - CARDIAC DISORDER [None]
  - CONSTIPATION [None]
  - COUGH [None]
  - DIZZINESS [None]
  - HYPOTENSION [None]
  - INJURY [None]
  - LEUKOCYTOSIS [None]
  - NAUSEA [None]
  - PALPITATIONS [None]
  - RENAL FAILURE ACUTE [None]
  - THERAPEUTIC AGENT TOXICITY [None]
  - URINARY INCONTINENCE [None]
